FAERS Safety Report 20199395 (Version 1)
Quarter: 2021Q4

REPORT INFORMATION
  Report Type: Spontaneous
  Country: US (occurrence: None)
  Receive Date: 20211217
  Receipt Date: 20211217
  Transmission Date: 20220303
  Serious: Yes (Hospitalization)
  Sender: FDA-Public Use
  Company Number: None

PATIENT
  Sex: Female
  Weight: 59 kg

DRUGS (1)
  1. FEMARA [Suspect]
     Active Substance: LETROZOLE
     Dates: end: 20190806

REACTIONS (5)
  - Disease progression [None]
  - Benign neoplasm [None]
  - Neoplasm malignant [None]
  - Cyst [None]
  - Polyp [None]

NARRATIVE: CASE EVENT DATE: 20190719
